FAERS Safety Report 11658926 (Version 3)
Quarter: 2015Q4

REPORT INFORMATION
  Report Type: Spontaneous
  Country: GB (occurrence: GB)
  Receive Date: 20151026
  Receipt Date: 20151027
  Transmission Date: 20160304
  Serious: Yes (Hospitalization)
  Sender: FDA-Public Use
  Company Number: PHHY2015GB124809

PATIENT
  Age: 58 Year
  Sex: Female
  Weight: 42.5 kg

DRUGS (4)
  1. LINEZOLID. [Suspect]
     Active Substance: LINEZOLID
     Indication: CENTRAL NERVOUS SYSTEM INFECTION
     Dosage: 600 MG, BID
     Route: 048
     Dates: start: 20150914, end: 20150927
  2. RIFAMPICIN [Suspect]
     Active Substance: RIFAMPIN
     Indication: CENTRAL NERVOUS SYSTEM INFECTION
     Dosage: 600 MG, BID
     Route: 048
     Dates: start: 20150914, end: 20150927
  3. DEXAMETASON [Concomitant]
     Active Substance: DEXAMETHASONE
     Indication: PRODUCT USED FOR UNKNOWN INDICATION
     Route: 065
  4. PARACETAMOL [Concomitant]
     Active Substance: ACETAMINOPHEN
     Indication: PRODUCT USED FOR UNKNOWN INDICATION
     Route: 065

REACTIONS (2)
  - Jaundice [Recovering/Resolving]
  - Blood bilirubin increased [Recovering/Resolving]

NARRATIVE: CASE EVENT DATE: 20150926
